FAERS Safety Report 7491259-5 (Version None)
Quarter: 2011Q2

REPORT INFORMATION
  Report Type: 
  Country: None (occurrence: None)
  Receive Date: 20110519
  Receipt Date: 20110510
  Transmission Date: 20111010
  Serious: Yes (Death, Hospitalization)
  Sender: FDA-Public Use
  Company Number: A0926860A

PATIENT
  Sex: Female

DRUGS (3)
  1. FLOLAN [Suspect]
     Indication: CONNECTIVE TISSUE DISORDER
     Route: 042
     Dates: start: 20100715
  2. REVATIO [Concomitant]
     Dosage: 20MG THREE TIMES PER DAY
     Route: 048
  3. FLOLAN [Suspect]
     Indication: CONNECTIVE TISSUE DISORDER
     Dosage: 9MG PER DAY
     Route: 050
     Dates: start: 20100715

REACTIONS (2)
  - DEATH [None]
  - HOSPITALISATION [None]
